FAERS Safety Report 7077885-6 (Version None)
Quarter: 2010Q4

REPORT INFORMATION
  Report Type: 
  Country: None (occurrence: None)
  Receive Date: 20101101
  Receipt Date: 20101019
  Transmission Date: 20110411
  Serious: Yes (Hospitalization)
  Sender: FDA-Public Use
  Company Number: FR-ELI_LILLY_AND_COMPANY-FR201010004219

PATIENT
  Sex: Female

DRUGS (15)
  1. ALIMTA [Suspect]
     Indication: BRONCHIAL CARCINOMA
     Dosage: 845 MG PER CYCLE
     Route: 042
  2. AVASTIN [Concomitant]
     Indication: BRONCHIAL CARCINOMA
     Dosage: 480 MG PER CYCLE
     Route: 065
     Dates: start: 20100727
  3. CISPLATIN [Concomitant]
     Indication: BRONCHIAL CARCINOMA
     Dosage: 126 MG, UNKNOWN
     Route: 042
     Dates: start: 20100727
  4. CISPLATIN [Concomitant]
     Dosage: 126 MG, UNKNOWN
     Route: 042
     Dates: start: 20100824
  5. PREDNISONE [Concomitant]
     Dosage: UNK, UNKNOWN
     Route: 065
  6. LYRICA [Concomitant]
     Dosage: UNK, UNKNOWN
     Route: 065
  7. KEPPRA [Concomitant]
     Dosage: UNK, UNKNOWN
     Route: 065
  8. OXYCONTIN [Concomitant]
     Dosage: UNK, UNKNOWN
     Route: 065
  9. FOSAMAX [Concomitant]
     Dosage: UNK, UNKNOWN
     Route: 065
  10. NEXIUM [Concomitant]
     Dosage: UNK, UNKNOWN
     Route: 065
  11. LEVOTHYROXINE SODIUM [Concomitant]
     Dosage: UNK, UNKNOWN
     Route: 065
  12. DIFFU-K [Concomitant]
     Dosage: UNK, UNKNOWN
     Route: 065
  13. URBANYL [Concomitant]
     Dosage: UNK, UNKNOWN
     Route: 065
  14. EMEND [Concomitant]
     Dosage: UNK, UNKNOWN
     Route: 065
  15. ONDANSETRON HCL [Concomitant]
     Dosage: ON DAY 2 AND 3 OF CHEMOTHERAPY, UNKNOWN
     Route: 065

REACTIONS (1)
  - PULMONARY EMBOLISM [None]
